FAERS Safety Report 6052553-8 (Version None)
Quarter: 2009Q1

REPORT INFORMATION
  Report Type: 
  Country: None (occurrence: None)
  Receive Date: 20090121
  Receipt Date: 20090110
  Transmission Date: 20090719
  Serious: Yes (Other)
  Sender: FDA-Public Use
  Company Number: CHPA2009US00570

PATIENT
  Age: 63 Year
  Sex: Female
  Weight: 54.4 kg

DRUGS (2)
  1. NICOTINE [Suspect]
     Indication: SMOKING CESSATION THERAPY
     Dosage: 21 MG, FOR COUPLE OF HOURS, TRANSDERMAL; 1/2 PATCH, TRANSDERMAL
     Route: 062
     Dates: start: 20090110, end: 20090110
  2. NICOTINE [Suspect]
     Indication: SMOKING CESSATION THERAPY
     Dosage: 21 MG, FOR COUPLE OF HOURS, TRANSDERMAL; 1/2 PATCH, TRANSDERMAL
     Route: 062
     Dates: start: 20090110

REACTIONS (5)
  - BLOOD PRESSURE INCREASED [None]
  - DYSPNOEA [None]
  - NAUSEA [None]
  - PALPITATIONS [None]
  - WRONG TECHNIQUE IN DRUG USAGE PROCESS [None]
